FAERS Safety Report 6434298-5 (Version None)
Quarter: 2009Q4

REPORT INFORMATION
  Report Type: 
  Country: None (occurrence: None)
  Receive Date: 20091110
  Receipt Date: 20091105
  Transmission Date: 20100525
  Serious: Yes (Hospitalization, Other)
  Sender: FDA-Public Use
  Company Number: BE-WYE-H07022808

PATIENT
  Sex: Male
  Weight: 80 kg

DRUGS (5)
  1. TACROLIMUS [Suspect]
     Indication: PROPHYLAXIS AGAINST TRANSPLANT REJECTION
     Route: 048
     Dates: start: 20070121, end: 20090101
  2. TACROLIMUS [Suspect]
     Route: 048
     Dates: start: 20090101
  3. GLURENORM [Concomitant]
     Indication: DIABETES MELLITUS
     Route: 048
     Dates: start: 20070221
  4. URSO FALK [Concomitant]
     Route: 048
     Dates: start: 20070128
  5. MYCOPHENOLATE MOFETIL [Concomitant]
     Indication: PROPHYLAXIS AGAINST TRANSPLANT REJECTION
     Route: 048
     Dates: start: 20070121

REACTIONS (1)
  - HEPATIC NEOPLASM MALIGNANT RECURRENT [None]
